FAERS Safety Report 23518254 (Version 1)
Quarter: 2024Q1

REPORT INFORMATION
  Report Type: Report from Study
  Country: BR (occurrence: BR)
  Receive Date: 20240213
  Receipt Date: 20240213
  Transmission Date: 20240409
  Serious: Yes (Hospitalization, Other)
  Sender: FDA-Public Use
  Company Number: BR-AstraZeneca-2023A172925

PATIENT
  Sex: Female
  Weight: 2.4 kg

DRUGS (1)
  1. SYNAGIS [Suspect]
     Active Substance: PALIVIZUMAB
     Indication: Antiviral prophylaxis
     Dosage: UNKNOWN
     Route: 030

REACTIONS (4)
  - Influenza [Unknown]
  - Product administration error [Unknown]
  - Illness [Unknown]
  - Pneumonia [Unknown]

NARRATIVE: CASE EVENT DATE: 20230301
